FAERS Safety Report 9739135 (Version 1)
Quarter: 2013Q4

REPORT INFORMATION
  Report Type: Report from Study
  Country: US (occurrence: US)
  Receive Date: 20131209
  Receipt Date: 20131209
  Transmission Date: 20140711
  Serious: Yes (Hospitalization)
  Sender: FDA-Public Use
  Company Number: US-ASTELLAS-2013US012764

PATIENT
  Age: 75 Year
  Sex: Female

DRUGS (3)
  1. ERLOTINIB TABLET [Suspect]
     Indication: LUNG ADENOCARCINOMA
     Dosage: 150 MG/DAY, UID/QD
     Route: 048
     Dates: start: 201210, end: 201308
  2. ERLOTINIB TABLET [Suspect]
     Indication: METASTASES TO SPINE
     Dosage: 100 MG, UID/QD
     Route: 048
     Dates: start: 201308
  3. ENALAPRIL /00574902/ [Suspect]
     Indication: BLOOD PRESSURE
     Dosage: UNK
     Route: 065
     Dates: end: 20131104

REACTIONS (3)
  - Haemoglobin decreased [Unknown]
  - Blood creatinine increased [Unknown]
  - Dysgeusia [Unknown]
